FAERS Safety Report 11427825 (Version 1)
Quarter: 2015Q3

REPORT INFORMATION
  Report Type: Spontaneous
  Country: FR (occurrence: FR)
  Receive Date: 20150828
  Receipt Date: 20150828
  Transmission Date: 20151125
  Serious: Yes (Other)
  Sender: FDA-Public Use
  Company Number: FR-ASTRAZENECA-2015SE81512

PATIENT
  Age: 18778 Day
  Sex: Male

DRUGS (13)
  1. INEXIUM [Concomitant]
     Active Substance: ESOMEPRAZOLE
  2. ADENURIC [Concomitant]
     Active Substance: FEBUXOSTAT
  3. B1B6 VITAMIN [Concomitant]
     Dates: end: 20150723
  4. BRILIQUE [Suspect]
     Active Substance: TICAGRELOR
     Route: 048
     Dates: start: 20150719, end: 20150720
  5. BRILIQUE [Suspect]
     Active Substance: TICAGRELOR
     Route: 048
     Dates: start: 20150720, end: 20150725
  6. ZOPICLONE [Concomitant]
     Active Substance: ZOPICLONE
  7. SIMVASTATINE [Concomitant]
     Active Substance: SIMVASTATIN
  8. SPIRONOLACTONE. [Concomitant]
     Active Substance: SPIRONOLACTONE
  9. CARDENSIEL [Concomitant]
     Active Substance: BISOPROLOL FUMARATE
  10. COVERAM [Concomitant]
     Active Substance: AMLODIPINE\PERINDOPRIL
  11. XENETIX [Suspect]
     Active Substance: IOBITRIDOL
     Indication: CORONARY ARTERY DISEASE
     Route: 042
     Dates: start: 20150719, end: 20150719
  12. KARDEGIC [Concomitant]
     Active Substance: ASPIRIN LYSINE
  13. LASILIX [Concomitant]
     Active Substance: FUROSEMIDE

REACTIONS (1)
  - Acute generalised exanthematous pustulosis [Recovered/Resolved]

NARRATIVE: CASE EVENT DATE: 20150722
